FAERS Safety Report 25191209 (Version 1)
Quarter: 2025Q2

REPORT INFORMATION
  Report Type: Spontaneous
  Country: CN (occurrence: CN)
  Receive Date: 20250411
  Receipt Date: 20250411
  Transmission Date: 20250717
  Serious: Yes (Other)
  Sender: BAUSCH AND LOMB
  Company Number: CN-BAUSCH-BL-2025-004736

PATIENT
  Age: 63 Year
  Sex: Male

DRUGS (4)
  1. SELEGILINE [Interacting]
     Active Substance: SELEGILINE
     Indication: Parkinson^s disease
     Route: 065
  2. LEVODOPA [Interacting]
     Active Substance: LEVODOPA
     Indication: Parkinson^s disease
     Route: 065
  3. ENTACAPONE [Interacting]
     Active Substance: ENTACAPONE
     Indication: Parkinson^s disease
     Route: 065
  4. CHLORPHENIRAMINE MALEATE\PSEUDOEPHEDRINE HYDROCHLORIDE [Interacting]
     Active Substance: CHLORPHENIRAMINE MALEATE\PSEUDOEPHEDRINE HYDROCHLORIDE
     Indication: Nasopharyngitis
     Route: 065
     Dates: start: 20231121

REACTIONS (2)
  - Serotonin syndrome [Recovered/Resolved]
  - Drug interaction [Recovered/Resolved]

NARRATIVE: CASE EVENT DATE: 20231121
